FAERS Safety Report 23563912 (Version 1)
Quarter: 2024Q1

REPORT INFORMATION
  Report Type: Other
  Country: DE (occurrence: DE)
  Receive Date: 20240226
  Receipt Date: 20240226
  Transmission Date: 20240409
  Serious: Yes (Hospitalization, Other)
  Sender: FDA-Public Use
  Company Number: DE-EMBRYOTOX-202211242

PATIENT
  Age: 1 Day
  Sex: Male
  Weight: 3.79 kg

DRUGS (6)
  1. QUETIAPINE [Suspect]
     Active Substance: QUETIAPINE
     Indication: Bipolar disorder
     Dosage: 150 MG, QD (AROUND GW 33 REDUCED TO 100 MG/D) (271 DAYS) (1 TRIMESTER 0. - 38.5. GESTATIONAL WEEK)
     Route: 064
     Dates: start: 20220630, end: 20230328
  2. LITHIUM CARBONATE [Suspect]
     Active Substance: LITHIUM CARBONATE
     Indication: Bipolar disorder
     Dosage: 400 MG, QD (SINCE 2010, 200-0-200 MG/D 2 SEPARATED DOSES) (271 DAYS) (1 TRIMESTER) (0. - 38.5. GESTA
     Route: 064
     Dates: start: 20220630, end: 20230328
  3. VENLAFAXINE HYDROCHLORIDE [Suspect]
     Active Substance: VENLAFAXINE HYDROCHLORIDE
     Indication: Bipolar disorder
     Dosage: 75 MG, QD (SINCE 2010) (271 DAYS) (1 TRIMESTER) (0. - 38.5. GESTATIONAL WEEK )
     Route: 064
     Dates: start: 20220630, end: 20230328
  4. DALTEPARIN SODIUM [Concomitant]
     Active Substance: DALTEPARIN SODIUM
     Indication: Thrombosis prophylaxis
     Dosage: 5000 INTERNATIONAL UNIT, QD (1 TRIMESTER 2.1. - 38.5. GESTATIONAL WEEK)
     Route: 064
  5. ASPIRIN [Concomitant]
     Active Substance: ASPIRIN
     Indication: Prophylaxis
     Dosage: 150 MG, QD (100) (2 TRIMESTER 15.2. - 38.4. GESTATIONAL WEEK)
     Route: 064
  6. LEVOTHYROXINE SODIUM [Concomitant]
     Active Substance: LEVOTHYROXINE SODIUM
     Indication: Hypothyroidism
     Dosage: 100 MICROGRAM, QD (SINCE 2016) (271 DAYS) (1 TRIMESTER 0. - 38.5. GESTATIONAL WEEK)
     Route: 064
     Dates: start: 20220630, end: 20230328

REACTIONS (7)
  - Atrial septal defect [Unknown]
  - Opisthotonus [Recovering/Resolving]
  - Oxygen saturation decreased [Recovered/Resolved]
  - Myoclonus [Recovering/Resolving]
  - Agitation neonatal [Recovering/Resolving]
  - Bradycardia neonatal [Recovered/Resolved]
  - Foetal exposure during pregnancy [Unknown]

NARRATIVE: CASE EVENT DATE: 20230301
